FAERS Safety Report 14951180 (Version 1)
Quarter: 2018Q2

REPORT INFORMATION
  Report Type: Report from Study
  Country: IT (occurrence: IT)
  Receive Date: 20180530
  Receipt Date: 20180530
  Transmission Date: 20180711
  Serious: Yes (Other)
  Sender: FDA-Public Use
  Company Number: IT-BAYER-2018-096811

PATIENT
  Age: 54 Year
  Sex: Female

DRUGS (1)
  1. GADOVIST 1,0 MMOL/ML SOLUZIONE INIETTABILE [Suspect]
     Active Substance: GADOBUTROL
     Indication: NUCLEAR MAGNETIC RESONANCE IMAGING NORMAL
     Dosage: 8 ML, ONCE
     Route: 042
     Dates: start: 20180409, end: 20180409

REACTIONS (3)
  - Throat tightness [Recovered/Resolved]
  - Rash [Recovered/Resolved]
  - Chest pain [Recovered/Resolved]

NARRATIVE: CASE EVENT DATE: 20180409
